FAERS Safety Report 7294837-1 (Version None)
Quarter: 2011Q1

REPORT INFORMATION
  Report Type: 
  Country: None (occurrence: None)
  Receive Date: 20110216
  Receipt Date: 20030107
  Transmission Date: 20110831
  Serious: Yes (Other)
  Sender: FDA-Public Use
  Company Number: US-JNJFOC-20100903203

PATIENT
  Weight: 111.13 kg

DRUGS (1)
  1. PROPULSID [Suspect]
     Indication: DIABETES MELLITUS
     Route: 048

REACTIONS (2)
  - CHRONIC HEPATITIS [None]
  - ANXIETY [None]
